FAERS Safety Report 11386931 (Version 1)
Quarter: 2015Q3

REPORT INFORMATION
  Report Type: Spontaneous
  Country: US (occurrence: None)
  Receive Date: 20150814
  Receipt Date: 20150814
  Transmission Date: 20151125
  Serious: Yes (Hospitalization)
  Sender: FDA-Public Use
  Company Number: None

PATIENT
  Age: 87 Year
  Sex: Female
  Weight: 66.3 kg

DRUGS (11)
  1. LASIX [Concomitant]
     Active Substance: FUROSEMIDE
  2. XARELTO [Suspect]
     Active Substance: RIVAROXABAN
     Indication: ATRIAL FIBRILLATION
     Dosage: CHRONIC
     Route: 048
  3. APAP [Concomitant]
     Active Substance: ACETAMINOPHEN
  4. XANAX [Concomitant]
     Active Substance: ALPRAZOLAM
  5. ULTRAM [Concomitant]
     Active Substance: TRAMADOL HYDROCHLORIDE
  6. TOPROL XL [Concomitant]
     Active Substance: METOPROLOL SUCCINATE
  7. KLOR-CON [Concomitant]
     Active Substance: POTASSIUM CHLORIDE
  8. SENNA [Concomitant]
     Active Substance: SENNA LEAF\SENNOSIDES\SENNOSIDES A AND B
  9. NORCO [Concomitant]
     Active Substance: ACETAMINOPHEN\HYDROCODONE BITARTRATE
  10. ATACAND [Concomitant]
     Active Substance: CANDESARTAN CILEXETIL
  11. XALATAN [Concomitant]
     Active Substance: LATANOPROST

REACTIONS (3)
  - Anaemia [None]
  - Diverticulum [None]
  - Condition aggravated [None]

NARRATIVE: CASE EVENT DATE: 20150209
